FAERS Safety Report 15288640 (Version 3)
Quarter: 2018Q3

REPORT INFORMATION
  Report Type: Report from Study
  Country: None (occurrence: CA)
  Receive Date: 20180817
  Receipt Date: 20180824
  Transmission Date: 20181010
  Serious: Yes (Other)
  Sender: FDA-Public Use
  Company Number: CA-ABBVIE-18K-028-2449719-00

PATIENT
  Sex: Male

DRUGS (1)
  1. HUMIRA [Suspect]
     Active Substance: ADALIMUMAB
     Indication: CROHN^S DISEASE
     Route: 058
     Dates: start: 20051103

REACTIONS (8)
  - Secretion discharge [Unknown]
  - Colectomy [Unknown]
  - Anal abscess [Unknown]
  - Frequent bowel movements [Unknown]
  - Pelvic fluid collection [Unknown]
  - Intestinal anastomosis [Unknown]
  - Gastrointestinal perforation [Unknown]
  - Abdominal hernia [Unknown]
